FAERS Safety Report 25669849 (Version 1)
Quarter: 2025Q3

REPORT INFORMATION
  Report Type: Spontaneous
  Country: EU (occurrence: EU)
  Receive Date: 20250812
  Receipt Date: 20250812
  Transmission Date: 20251020
  Serious: Yes (Hospitalization, Other)
  Sender: REGENERON
  Company Number: EU-BAYER-2025A106173

PATIENT
  Sex: Male

DRUGS (5)
  1. EYLEA HD [Suspect]
     Active Substance: AFLIBERCEPT
     Indication: Product used for unknown indication
  2. EYLEA HD [Suspect]
     Active Substance: AFLIBERCEPT
  3. EYLEA HD [Suspect]
     Active Substance: AFLIBERCEPT
  4. EYLEA HD [Suspect]
     Active Substance: AFLIBERCEPT
  5. EYLEA HD [Suspect]
     Active Substance: AFLIBERCEPT
     Dates: start: 20250723, end: 20250723

REACTIONS (4)
  - Vitreous opacities [Unknown]
  - Eye inflammation [Unknown]
  - Endophthalmitis [Unknown]
  - Vitreous floaters [Unknown]

NARRATIVE: CASE EVENT DATE: 20250731
